FAERS Safety Report 5142465-6 (Version None)
Quarter: 2006Q4

REPORT INFORMATION
  Report Type: 
  Country: None (occurrence: None)
  Receive Date: 20061027
  Receipt Date: 20061018
  Transmission Date: 20070319
  Serious: Yes (Hospitalization)
  Sender: FDA-Public Use
  Company Number: 163-21880-06100884

PATIENT
  Age: 67 Year
  Sex: Female

DRUGS (3)
  1. REVLIMID [Suspect]
     Indication: MULTIPLE MYELOMA
     Dosage: 25 MG, DAILY X21 DAYS, ORAL
     Route: 048
     Dates: start: 20060725
  2. DEXAMETHASONE TAB [Suspect]
     Indication: MULTIPLE MYELOMA
     Dosage: 40 MG, QWK, ORAL
     Route: 048
     Dates: start: 20060725
  3. BIAXIN [Suspect]
     Indication: MULTIPLE MYELOMA
     Dosage: 500 MG, BID, ORAL
     Route: 048
     Dates: start: 20060725

REACTIONS (6)
  - APHASIA [None]
  - DELUSION [None]
  - ELECTROLYTE IMBALANCE [None]
  - HYPONATRAEMIA [None]
  - MEMORY IMPAIRMENT [None]
  - PSYCHOTIC DISORDER [None]
